FAERS Safety Report 17964845 (Version 1)
Quarter: 2020Q2

REPORT INFORMATION
  Report Type: Spontaneous
  Country: US (occurrence: US)
  Receive Date: 20200630
  Receipt Date: 20200630
  Transmission Date: 20200714
  Serious: Yes (Hospitalization, Other)
  Sender: FDA-Public Use
  Company Number: US-BRISTOL-MYERS SQUIBB COMPANY-BMS-2020-050620

PATIENT
  Age: 53 Year
  Sex: Male
  Weight: 76.5 kg

DRUGS (2)
  1. OPDIVO [Suspect]
     Active Substance: NIVOLUMAB
     Indication: METASTATIC MALIGNANT MELANOMA
     Dosage: 3 DOSES
     Route: 065
     Dates: start: 20200224
  2. YERVOY [Suspect]
     Active Substance: IPILIMUMAB
     Indication: METASTATIC MALIGNANT MELANOMA
     Dosage: 3 DOSES
     Route: 065
     Dates: start: 20200224

REACTIONS (2)
  - Malignant neoplasm progression [Unknown]
  - Vomiting [Unknown]
